FAERS Safety Report 6773554-8 (Version None)
Quarter: 2010Q2

REPORT INFORMATION
  Report Type: 
  Country: None (occurrence: None)
  Receive Date: 20100611
  Receipt Date: 20100526
  Transmission Date: 20101027
  Serious: Yes (Other)
  Sender: FDA-Public Use
  Company Number: ACO_00961_2010

PATIENT
  Sex: Female
  Weight: 65.7716 kg

DRUGS (6)
  1. AMPYRA [Suspect]
     Indication: MULTIPLE SCLEROSIS
     Dosage: (10 MG BID ORAL)
     Route: 048
     Dates: start: 20100401, end: 20100527
  2. DEPAKOTE [Concomitant]
  3. CYMBALTA [Concomitant]
  4. KLONOPIN [Concomitant]
  5. TYSABRI [Concomitant]
  6. TILZANIDINE [Concomitant]

REACTIONS (7)
  - CRYING [None]
  - EYE MOVEMENT DISORDER [None]
  - FEELING ABNORMAL [None]
  - MIDDLE INSOMNIA [None]
  - MYOCLONUS [None]
  - PANIC ATTACK [None]
  - VISION BLURRED [None]
